FAERS Safety Report 21043879 (Version 1)
Quarter: 2022Q3

REPORT INFORMATION
  Report Type: Spontaneous
  Country: US (occurrence: None)
  Receive Date: 20220702
  Receipt Date: 20220702
  Transmission Date: 20221027
  Serious: Yes (Death)
  Sender: FDA-Public Use
  Company Number: None

PATIENT
  Age: 67 Year
  Sex: Female

DRUGS (1)
  1. VERZENIO [Suspect]
     Active Substance: ABEMACICLIB
     Dosage: FREQUENCY : DAILY;?
     Route: 048

REACTIONS (2)
  - Pneumonia [None]
  - Chemotherapy toxicity attenuation [None]

NARRATIVE: CASE EVENT DATE: 20220629
